FAERS Safety Report 23308252 (Version 1)
Quarter: 2023Q4

REPORT INFORMATION
  Report Type: Spontaneous
  Country: SI (occurrence: SI)
  Receive Date: 20231218
  Receipt Date: 20231218
  Transmission Date: 20240109
  Serious: Yes (Other)
  Sender: FDA-Public Use
  Company Number: SI-BAYER-2023A177851

PATIENT
  Age: 54 Year
  Sex: Male

DRUGS (1)
  1. STIVARGA [Suspect]
     Active Substance: REGORAFENIB
     Dosage: UNK
     Dates: start: 202211

REACTIONS (4)
  - Hernia repair [None]
  - Abscess drainage [None]
  - Inflammatory marker increased [None]
  - Purulent discharge [None]

NARRATIVE: CASE EVENT DATE: 20230501
